FAERS Safety Report 9785700 (Version 2)
Quarter: 2014Q2

REPORT INFORMATION
  Report Type: Spontaneous
  Country: US (occurrence: US)
  Receive Date: 20131227
  Receipt Date: 20140515
  Transmission Date: 20141212
  Serious: Yes (Other)
  Sender: FDA-Public Use
  Company Number: US-BAYER-2013-155640

PATIENT
  Age: 29 Year
  Sex: Female

DRUGS (20)
  1. BEYAZ [Suspect]
     Dosage: UNK
     Dates: start: 201107, end: 201112
  2. YAZ [Suspect]
  3. SULFAMETHOXAZOLE W/TRIMETHOPRIM [Concomitant]
     Dosage: 800-160 MG
  4. TRAMADOL [Concomitant]
     Dosage: 50 MG, UNK
  5. PRENATAL VITAMINS [Concomitant]
  6. METRONIDAZOLE [Concomitant]
     Dosage: 500 MG, UNK
  7. ACETAMINOPHEN W/OXYCODONE [Concomitant]
     Dosage: 5/325 MG
  8. CEPHALEXIN [Concomitant]
     Dosage: 500 MG, UNK
  9. ROPIVACAINE [Concomitant]
     Dosage: 0.375% 30 ML
  10. PHENERGAN [Concomitant]
     Dosage: 6.25 MG, UNK
     Route: 042
  11. LIDOCAINE [Concomitant]
     Dosage: 60 MG, UNK
  12. PROPOFOL [Concomitant]
     Dosage: 250 MG, UNK
  13. FENTANYL [Concomitant]
     Dosage: 50 MCG
  14. VERSED [Concomitant]
     Dosage: 5 MG, UNK
  15. ANUCORT-HC [Concomitant]
     Dosage: 25 MG, UNK
  16. HYDROCODONE W/ACETAMINOPHEN [Concomitant]
     Dosage: 5-500 MG
  17. ACETAMINOPHEN W/CODEINE [Concomitant]
     Dosage: 300/30 MG
  18. ASPIRIN [Concomitant]
  19. ACETAMINOPHEN [Concomitant]
  20. IBUPROFEN [Concomitant]

REACTIONS (7)
  - Deep vein thrombosis [None]
  - Injury [None]
  - Pain [None]
  - Emotional distress [None]
  - General physical health deterioration [None]
  - Anxiety [None]
  - Pain [None]
